FAERS Safety Report 9055482 (Version 3)
Quarter: 2013Q2

REPORT INFORMATION
  Report Type: Report from Study
  Country: FR (occurrence: FR)
  Receive Date: 20130125
  Receipt Date: 20130411
  Transmission Date: 20140414
  Serious: Yes (Hospitalization)
  Sender: FDA-Public Use
  Company Number: FR-B.I. PHARMACEUTICALS,INC./RIDGEFIELD-2012-EU-05474EU

PATIENT
  Age: 90 Year
  Sex: Female
  Weight: 68 kg

DRUGS (9)
  1. DABIGATRAN [Suspect]
     Indication: CEREBROVASCULAR ACCIDENT PROPHYLAXIS
     Dosage: 300 MG
     Route: 048
     Dates: start: 20090202, end: 20120713
  2. DABIGATRAN [Suspect]
     Indication: ATRIAL FIBRILLATION
  3. HEMIGOXINE [Concomitant]
     Indication: CARDIAC FAILURE
     Dosage: 0.125 MG
     Route: 048
     Dates: start: 20070205
  4. LASILIX FAIBLE (FUROSEMIDE) [Concomitant]
     Indication: CARDIAC FAILURE
     Dosage: 20 MG
     Route: 048
     Dates: start: 201106
  5. PARIET [Concomitant]
     Indication: CARDIAC FAILURE
     Dosage: 20 MG
     Route: 048
     Dates: start: 20110912
  6. STEROIDS [Concomitant]
  7. ZYLORIC [Concomitant]
     Indication: ARTHRITIS
     Dosage: 100 MG
  8. COUMADINE [Concomitant]
  9. COUMADINE [Concomitant]

REACTIONS (1)
  - Hiatus hernia [Recovered/Resolved]
